FAERS Safety Report 21126257 (Version 5)
Quarter: 2023Q4

REPORT INFORMATION
  Report Type: Spontaneous
  Country: US (occurrence: US)
  Receive Date: 20220725
  Receipt Date: 20231128
  Transmission Date: 20240110
  Serious: Yes (Other)
  Sender: FDA-Public Use
  Company Number: US-PFIZER INC-PV202200028448

PATIENT
  Age: 58 Year
  Sex: Female

DRUGS (11)
  1. XELJANZ XR [Suspect]
     Active Substance: TOFACITINIB CITRATE
     Indication: Psoriasis
     Dosage: 11 MG, DAILY
     Dates: start: 20220728, end: 202309
  2. CELEBREX [Concomitant]
     Active Substance: CELECOXIB
  3. ATORVASTATIN [Concomitant]
     Active Substance: ATORVASTATIN
  4. LEVEMIR [Concomitant]
     Active Substance: INSULIN DETEMIR
  5. SPIRONOLACTONE AND HYDROCHLOROTHIAZIDE [Concomitant]
     Active Substance: HYDROCHLOROTHIAZIDE\SPIRONOLACTONE
  6. TYLENOL [Concomitant]
     Active Substance: ACETAMINOPHEN
  7. FOLIC ACID [Concomitant]
     Active Substance: FOLIC ACID
  8. LASIX [Concomitant]
     Active Substance: FUROSEMIDE
  9. VITAMIN D NOS [Concomitant]
     Active Substance: VITAMIN D NOS
  10. CALCIUM [Concomitant]
     Active Substance: CALCIUM
  11. COMIRNATY (TOZINAMERAN) [Concomitant]
     Active Substance: TOZINAMERAN
     Indication: COVID-19 immunisation

REACTIONS (15)
  - Psoriatic arthropathy [Unknown]
  - Aortic aneurysm [Unknown]
  - Pain [Unknown]
  - Product dose omission issue [Unknown]
  - Illness [Unknown]
  - Skin disorder [Unknown]
  - Dry skin [Unknown]
  - Stress [Unknown]
  - Anxiety [Unknown]
  - Arthralgia [Unknown]
  - Back pain [Unknown]
  - Facial pain [Unknown]
  - Eye pain [Unknown]
  - Pain in extremity [Unknown]
  - Limb discomfort [Unknown]

NARRATIVE: CASE EVENT DATE: 20230912
